FAERS Safety Report 6722027-7 (Version None)
Quarter: 2010Q2

REPORT INFORMATION
  Report Type: 
  Country: None (occurrence: None)
  Receive Date: 20100512
  Receipt Date: 20100503
  Transmission Date: 20101027
  Serious: Yes (Hospitalization)
  Sender: FDA-Public Use
  Company Number: US-ELI_LILLY_AND_COMPANY-US201005000658

PATIENT
  Sex: Male

DRUGS (4)
  1. HUMALOG MIX 50/50 [Suspect]
     Indication: TYPE 1 DIABETES MELLITUS
     Dosage: 45 U, EACH MORNING
     Dates: start: 20090101
  2. HUMALOG MIX 50/50 [Suspect]
     Dosage: 36 U, EACH EVENING
     Dates: start: 20090101
  3. HUMALOG MIX 50/50 [Suspect]
     Dosage: 45 U, EACH MORNING
     Dates: start: 20090101
  4. HUMALOG MIX 50/50 [Suspect]
     Dosage: 36 U, EACH EVENING
     Dates: start: 20090101

REACTIONS (3)
  - BLOOD GLUCOSE INCREASED [None]
  - BLOOD KETONE BODY INCREASED [None]
  - INJECTION SITE PAIN [None]
